FAERS Safety Report 21891364 (Version 1)
Quarter: 2023Q1

REPORT INFORMATION
  Report Type: Spontaneous
  Country: US (occurrence: None)
  Receive Date: 20230119
  Receipt Date: 20230119
  Transmission Date: 20230418
  Serious: No
  Sender: FDA-Public Use
  Company Number: None

PATIENT
  Age: 67 Year
  Sex: Female
  Weight: 71.85 kg

DRUGS (18)
  1. ERIVEDGE [Suspect]
     Active Substance: VISMODEGIB
     Dosage: FREQUENCY : DAILY;?
     Route: 048
  2. ACETAMINOPHEN [Concomitant]
     Active Substance: ACETAMINOPHEN
  3. AMITRIPTYLINE [Concomitant]
     Active Substance: AMITRIPTYLINE
  4. BUSPIRONE [Concomitant]
     Active Substance: BUSPIRONE HYDROCHLORIDE
  5. CELECOXIB [Concomitant]
     Active Substance: CELECOXIB
  6. CLONAZEPAM [Concomitant]
     Active Substance: CLONAZEPAM
  7. DEXAMETHASONE [Concomitant]
     Active Substance: DEXAMETHASONE
  8. DULOXETINE [Concomitant]
     Active Substance: DULOXETINE
  9. GABAPENTIN [Concomitant]
     Active Substance: GABAPENTIN
  10. HALOPERIDOL [Concomitant]
     Active Substance: HALOPERIDOL
  11. INSULIN NOS [Concomitant]
     Active Substance: INSULIN NOS
  12. KETOROLAC [Concomitant]
     Active Substance: KETOROLAC TROMETHAMINE
  13. METFORMIN [Concomitant]
     Active Substance: METFORMIN HYDROCHLORIDE
  14. MUPIROCIN [Concomitant]
     Active Substance: MUPIROCIN
  15. PROPRANOLOL [Concomitant]
     Active Substance: PROPRANOLOL HYDROCHLORIDE
  16. SEMAGLUTIDE [Concomitant]
     Active Substance: SEMAGLUTIDE
  17. SIMVASTATIN [Concomitant]
     Active Substance: SIMVASTATIN
  18. TRAZODONE [Concomitant]
     Active Substance: TRAZODONE HYDROCHLORIDE

REACTIONS (1)
  - COVID-19 [None]
